FAERS Safety Report 13352085 (Version 1)
Quarter: 2017Q1

REPORT INFORMATION
  Report Type: Spontaneous
  Country: US (occurrence: US)
  Receive Date: 20170320
  Receipt Date: 20170320
  Transmission Date: 20170429
  Serious: No
  Sender: FDA-Public Use
  Company Number: US-SA-2016SA109328

PATIENT
  Age: 45 Year
  Sex: Female
  Weight: 85 kg

DRUGS (1)
  1. NASACORT ALLERGY 24HR [Suspect]
     Active Substance: TRIAMCINOLONE ACETONIDE
     Indication: SINUS DISORDER
     Dosage: START DATE: 3 WEEKS AGO, DOSAGE FORM: INHALER, DOSE 2 PUMPS EACH NOSTRIL, 6 OR MORE TIMES
     Route: 065
     Dates: start: 20160520, end: 20160604

REACTIONS (1)
  - Drug effect incomplete [Unknown]
